FAERS Safety Report 9483239 (Version 1)
Quarter: 2013Q3

REPORT INFORMATION
  Report Type: Spontaneous
  Country: US (occurrence: US)
  Receive Date: 20130828
  Receipt Date: 20130828
  Transmission Date: 20140515
  Serious: Yes (Other)
  Sender: FDA-Public Use
  Company Number: US-AMGEN-KDL244671

PATIENT
  Age: 64 Year
  Sex: Female

DRUGS (2)
  1. ENBREL [Suspect]
     Indication: RHEUMATOID ARTHRITIS
     Dosage: 25 MG, QWK
     Route: 058
     Dates: start: 20000101
  2. METHOTREXATE [Concomitant]
     Dosage: 2.5 MG, 4 TIMES/WK
     Route: 048
     Dates: start: 2000

REACTIONS (8)
  - Breast cancer [Unknown]
  - Upper limb fracture [Recovered/Resolved]
  - Cystitis [Unknown]
  - Musculoskeletal stiffness [Unknown]
  - Infection [Unknown]
  - Tooth disorder [Recovered/Resolved]
  - Laceration [Recovered/Resolved]
  - Injection site pain [Unknown]
